FAERS Safety Report 5019468-5 (Version None)
Quarter: 2006Q2

REPORT INFORMATION
  Report Type: 
  Country: None (occurrence: None)
  Receive Date: 20060530
  Receipt Date: 20060515
  Transmission Date: 20061013
  Serious: Yes (Death)
  Sender: FDA-Public Use
  Company Number: SUS1-2006-00515

PATIENT
  Age: 22 Year
  Sex: Male

DRUGS (1)
  1. ADDERALL 10 [Suspect]
     Dosage: POSSIBLY 20 MG, 5X/DAY

REACTIONS (1)
  - PRESCRIBED OVERDOSE [None]
